FAERS Safety Report 6732276-X (Version None)
Quarter: 2010Q2

REPORT INFORMATION
  Report Type: 
  Country: None (occurrence: None)
  Receive Date: 20100519
  Receipt Date: 20100514
  Transmission Date: 20101027
  Serious: Yes (Hospitalization)
  Sender: FDA-Public Use
  Company Number: B0652848A

PATIENT
  Sex: Male

DRUGS (10)
  1. AUGMENTIN '125' [Suspect]
     Indication: HYPERTHERMIA
     Route: 048
     Dates: start: 20100324, end: 20100328
  2. AUGMENTIN '125' [Suspect]
     Indication: DRUG USE FOR UNKNOWN INDICATION
     Dosage: 1G THREE TIMES PER DAY
     Route: 042
     Dates: start: 20100407
  3. OFLOCET [Suspect]
     Indication: HYPERTHERMIA
     Route: 048
     Dates: start: 20100324, end: 20100328
  4. NAFTIDROFURYL [Concomitant]
     Dosage: 2UNIT PER DAY
     Route: 065
  5. CORENITEC [Concomitant]
     Route: 065
  6. DIFFU K [Concomitant]
     Route: 065
  7. IMOVANE [Concomitant]
     Route: 065
  8. ACETAMINOPHEN [Concomitant]
     Route: 065
  9. VOLTAREN [Concomitant]
     Route: 065
  10. OFLOCET [Concomitant]
     Indication: DRUG USE FOR UNKNOWN INDICATION
     Dosage: 200MG SINGLE DOSE
     Route: 042
     Dates: start: 20100407, end: 20100407

REACTIONS (3)
  - ARTHRALGIA [None]
  - CONJUNCTIVAL HAEMORRHAGE [None]
  - EPISTAXIS [None]
